FAERS Safety Report 6105636-8 (Version None)
Quarter: 2009Q1

REPORT INFORMATION
  Report Type: 
  Country: None (occurrence: None)
  Receive Date: 20090304
  Receipt Date: 20090304
  Transmission Date: 20090719
  Serious: Yes (Disabling)
  Sender: FDA-Public Use
  Company Number: None

PATIENT
  Age: 52 Year
  Sex: Female
  Weight: 71.6683 kg

DRUGS (2)
  1. HERCEPTIN [Suspect]
     Indication: BREAST CANCER
     Dosage: 140 MG WEEKLY IV DRIP;  140 MG EVERY THREE WEEKS IV DRIP
     Route: 041
     Dates: start: 20080624, end: 20080924
  2. HERCEPTIN [Suspect]
     Indication: BREAST CANCER
     Dosage: 140 MG WEEKLY IV DRIP;  140 MG EVERY THREE WEEKS IV DRIP
     Route: 041
     Dates: start: 20081031, end: 20090122

REACTIONS (2)
  - INCORRECT DOSE ADMINISTERED [None]
  - MULTIPLE GATED ACQUISITION SCAN ABNORMAL [None]
